FAERS Safety Report 8616103-1 (Version None)
Quarter: 2012Q3

REPORT INFORMATION
  Report Type: 
  Country: None (occurrence: None)
  Receive Date: 20120823
  Receipt Date: 20120814
  Transmission Date: 20120928
  Serious: Yes (Death, Hospitalization, Other)
  Sender: FDA-Public Use
  Company Number: AU-CELGENEUS-008-20785-12081597

PATIENT
  Age: 63 Year
  Sex: Male

DRUGS (5)
  1. VIDAZA [Suspect]
     Dosage: 50% DOSE REDUCTION
     Route: 065
  2. VIDAZA [Suspect]
     Dosage: 75 MILLIGRAM/SQ. METER
     Route: 065
  3. CYTARABINE [Concomitant]
     Route: 065
  4. FLUDARABINE PHOSPHATE [Concomitant]
     Route: 065
  5. THALIDOMIDE [Suspect]
     Dosage: 100 MILLIGRAM
     Route: 048

REACTIONS (13)
  - CARDIAC FAILURE [None]
  - BLAST CRISIS IN MYELOGENOUS LEUKAEMIA [None]
  - JOINT SWELLING [None]
  - ARTERITIS CORONARY [None]
  - CONSTIPATION [None]
  - NEUTROPENIA [None]
  - DISEASE RECURRENCE [None]
  - RASH [None]
  - CORONARY ARTERY STENOSIS [None]
  - PSEUDOMONAL SEPSIS [None]
  - PANCYTOPENIA [None]
  - FEBRILE NEUTROPENIA [None]
  - AORTITIS [None]
